FAERS Safety Report 8322300-5 (Version None)
Quarter: 2012Q2

REPORT INFORMATION
  Report Type: 
  Country: None (occurrence: None)
  Receive Date: 20120430
  Receipt Date: 20120424
  Transmission Date: 20120825
  Serious: Yes (Other)
  Sender: FDA-Public Use
  Company Number: PHHY2011CA103839

PATIENT
  Sex: Female

DRUGS (1)
  1. GILENYA [Suspect]
     Indication: RELAPSING-REMITTING MULTIPLE SCLEROSIS
     Dosage: 0.5 MG, QD
     Route: 048
     Dates: start: 20110824

REACTIONS (10)
  - FALL [None]
  - BACK PAIN [None]
  - MONOPLEGIA [None]
  - HYPERTENSION [None]
  - UPPER LIMB FRACTURE [None]
  - HEADACHE [None]
  - RIB FRACTURE [None]
  - FEELING ABNORMAL [None]
  - HYPOKINESIA [None]
  - BALANCE DISORDER [None]
